FAERS Safety Report 21548828 (Version 1)
Quarter: 2022Q4

REPORT INFORMATION
  Report Type: Spontaneous
  Country: US (occurrence: US)
  Receive Date: 20221103
  Receipt Date: 20221103
  Transmission Date: 20230113
  Serious: Yes (Hospitalization)
  Sender: FDA-Public Use
  Company Number: US-BIOVITRUM-2022US12540

PATIENT
  Sex: Male
  Weight: 5 kg

DRUGS (7)
  1. SYNAGIS [Suspect]
     Active Substance: PALIVIZUMAB
     Indication: Premature baby
     Dosage: 100MG SDV/INJ PF 1 ML 1^S
     Dates: start: 20220923
  2. VITAMIN D3 [Concomitant]
     Active Substance: CHOLECALCIFEROL
     Dosage: 10(400)/ML DROPS
  3. Carvedilol ER [Concomitant]
     Dosage: CPMP 24 HR
  4. SIMETHICONE (DIMETHICONE) [Concomitant]
     Active Substance: DIMETHICONE
     Dosage: 40 MG/0.6 ML DROPS SUSPENSION
  5. FUROSEMIDE [Concomitant]
     Active Substance: FUROSEMIDE
  6. CAPTOPRIL [Concomitant]
     Active Substance: CAPTOPRIL
  7. FERROUS SULFATE [Concomitant]
     Active Substance: FERROUS SULFATE

REACTIONS (1)
  - Cardiac disorder [Not Recovered/Not Resolved]
